FAERS Safety Report 9778804 (Version 1)
Quarter: 2013Q4

REPORT INFORMATION
  Report Type: Spontaneous
  Country: US (occurrence: None)
  Receive Date: 20131220
  Receipt Date: 20131220
  Transmission Date: 20140711
  Serious: Yes (Other)
  Sender: FDA-Public Use
  Company Number: None

PATIENT
  Age: 42 Year
  Sex: Male
  Weight: 91 kg

DRUGS (10)
  1. CLOZAPINE [Suspect]
     Indication: SCHIZOPHRENIA
     Route: 048
     Dates: start: 20130816, end: 20131217
  2. DIVALPROEX [Concomitant]
  3. GABAPENTIN [Concomitant]
  4. HALOPERIDOL [Concomitant]
  5. METFORMIN [Concomitant]
  6. QUETIAPINE [Concomitant]
  7. SENNA [Concomitant]
  8. PSYLLIUM [Concomitant]
  9. DOCUSATE [Concomitant]
  10. MULTIVITAMIN [Concomitant]

REACTIONS (1)
  - Neutrophil count decreased [None]
